FAERS Safety Report 8612210-8 (Version None)
Quarter: 2012Q3

REPORT INFORMATION
  Report Type: 
  Country: None (occurrence: None)
  Receive Date: 20120822
  Receipt Date: 20120809
  Transmission Date: 20120928
  Serious: No
  Sender: FDA-Public Use
  Company Number: US-ASTRAZENECA-2012SE56243

PATIENT
  Sex: Female

DRUGS (3)
  1. ALBUTEROL [Concomitant]
  2. STEROIDS [Concomitant]
  3. PULMICORT FLEXHALER [Suspect]
     Indication: ASTHMA
     Dosage: 2 PUFFS
     Route: 055
     Dates: start: 20120731

REACTIONS (2)
  - DYSPNOEA [None]
  - MATERNAL EXPOSURE DURING PREGNANCY [None]
